FAERS Safety Report 6883555-7 (Version None)
Quarter: 2010Q3

REPORT INFORMATION
  Report Type: 
  Country: None (occurrence: None)
  Receive Date: 20100729
  Receipt Date: 20100722
  Transmission Date: 20110219
  Serious: Yes (Hospitalization)
  Sender: FDA-Public Use
  Company Number: RU-BAYER-201033611GPV

PATIENT
  Age: 46 Year
  Sex: Male
  Weight: 90 kg

DRUGS (1)
  1. BILTRICIDE [Suspect]
     Indication: OPISTHORCHIASIS
     Route: 048
     Dates: start: 20100718, end: 20100718

REACTIONS (1)
  - ANGIOEDEMA [None]
